FAERS Safety Report 24687139 (Version 1)
Quarter: 2024Q4

REPORT INFORMATION
  Report Type: Spontaneous
  Country: FR (occurrence: FR)
  Receive Date: 20241202
  Receipt Date: 20241202
  Transmission Date: 20250114
  Serious: Yes (Death, Hospitalization, Other)
  Sender: AMGEN
  Company Number: FR-AMGEN-FRASP2024236080

PATIENT

DRUGS (3)
  1. ADALIMUMAB [Suspect]
     Active Substance: ADALIMUMAB
     Indication: Crohn^s disease
     Dosage: UNK
     Route: 065
  2. RISANKIZUMAB [Suspect]
     Active Substance: RISANKIZUMAB
     Indication: Crohn^s disease
     Dosage: 600 MILLIGRAM, AT WEEK 0, WEEK 4, AND WEEK 8
     Route: 040
  3. RISANKIZUMAB [Suspect]
     Active Substance: RISANKIZUMAB
     Dosage: 360 MILLIGRAM, Q8WK, MAINTENANCE DOSE
     Route: 058

REACTIONS (22)
  - Death [Fatal]
  - Crohn^s disease [Unknown]
  - Nephrolithiasis [Unknown]
  - Renal abscess [Unknown]
  - Pyelonephritis [Unknown]
  - Neoplasm malignant [Unknown]
  - Hepatitis [Unknown]
  - Arrhythmia [Unknown]
  - Gastrointestinal haemorrhage [Unknown]
  - Myocardial infarction [Unknown]
  - Anaemia [Unknown]
  - Hypertension [Unknown]
  - Injection site reaction [Unknown]
  - Arthralgia [Unknown]
  - Ear infection [Unknown]
  - Rash [Unknown]
  - Bronchitis [Unknown]
  - Alopecia [Unknown]
  - Urinary tract infection [Unknown]
  - Psoriasis [Unknown]
  - Headache [Unknown]
  - Breast pain [Unknown]
